FAERS Safety Report 4817220-4 (Version None)
Quarter: 2005Q4

REPORT INFORMATION
  Report Type: 
  Country: None (occurrence: None)
  Receive Date: 20051101
  Receipt Date: 20051025
  Transmission Date: 20060501
  Serious: Yes (Other)
  Sender: FDA-Public Use
  Company Number: US-JNJFOC-20050704715

PATIENT
  Sex: Male
  Weight: 113.4 kg

DRUGS (4)
  1. FENTANYL [Suspect]
     Indication: ACCIDENTAL EXPOSURE
     Route: 050
  2. DIURETIC [Concomitant]
  3. PERCOCET [Concomitant]
     Route: 065
  4. PERCOCET [Concomitant]
     Indication: PAIN
     Route: 065

REACTIONS (10)
  - ACCIDENTAL EXPOSURE [None]
  - DEVICE FAILURE [None]
  - HYPERHIDROSIS [None]
  - HYPOVENTILATION [None]
  - LOSS OF CONSCIOUSNESS [None]
  - OXYGEN SATURATION DECREASED [None]
  - PHARMACEUTICAL PRODUCT COMPLAINT [None]
  - SKIN DISORDER [None]
  - SOMNOLENCE [None]
  - URINARY RETENTION [None]
